FAERS Safety Report 9617281 (Version 6)
Quarter: 2014Q2

REPORT INFORMATION
  Report Type: Spontaneous
  Country: US (occurrence: US)
  Receive Date: 20131011
  Receipt Date: 20140410
  Transmission Date: 20141212
  Serious: Yes (Death, Hospitalization, Other)
  Sender: FDA-Public Use
  Company Number: US-BAXTER-2013BAX038829

PATIENT
  Age: 57 Year
  Sex: Male

DRUGS (4)
  1. DIANEAL LOW CALCIUM [Suspect]
     Indication: PERITONEAL DIALYSIS
     Route: 033
     Dates: start: 201303, end: 20140303
  2. DIANEAL LOW CALCIUM [Suspect]
     Indication: RENAL FAILURE CHRONIC
  3. EXTRANEAL [Suspect]
     Indication: PERITONEAL DIALYSIS
     Route: 033
     Dates: start: 201303, end: 20140303
  4. EXTRANEAL [Suspect]
     Indication: RENAL FAILURE CHRONIC

REACTIONS (10)
  - Cardiac failure [Fatal]
  - Wheezing [Unknown]
  - Troponin increased [Unknown]
  - Ejection fraction abnormal [Unknown]
  - Sepsis [Unknown]
  - Activities of daily living impaired [Unknown]
  - Dyspnoea [Unknown]
  - Chest pain [Unknown]
  - Peritonitis [Recovered/Resolved]
  - Catheter site infection [Unknown]
